FAERS Safety Report 9612209 (Version 1)
Quarter: 2013Q4

REPORT INFORMATION
  Report Type: Spontaneous
  Country: BR (occurrence: BR)
  Receive Date: 20131010
  Receipt Date: 20131010
  Transmission Date: 20140711
  Serious: Yes (Hospitalization)
  Sender: FDA-Public Use
  Company Number: BR-ASTRAZENECA-2013SE73874

PATIENT
  Age: 976 Month
  Sex: Male
  Weight: 70 kg

DRUGS (6)
  1. CRESTOR [Suspect]
     Dosage: DAILY.
     Route: 048
     Dates: start: 2011
  2. CONCOR [Concomitant]
     Dates: start: 2008
  3. JANUMET [Concomitant]
     Dates: start: 2008
  4. INSULIN [Concomitant]
     Dates: start: 2008
  5. ASPIRIN PREVENT [Concomitant]
     Dates: start: 2008
  6. FRONTAL [Concomitant]
     Dates: start: 2008

REACTIONS (1)
  - Myocardial infarction [Recovered/Resolved]
